FAERS Safety Report 16038441 (Version 7)
Quarter: 2019Q3

REPORT INFORMATION
  Report Type: Report from Study
  Country: CA (occurrence: CA)
  Receive Date: 20190305
  Receipt Date: 20190718
  Transmission Date: 20191004
  Serious: Yes (Other)
  Sender: FDA-Public Use
  Company Number: CA-SHIRE-CA201905583

PATIENT

DRUGS (7)
  1. TEDUGLUTIDE [Suspect]
     Active Substance: TEDUGLUTIDE
     Indication: SHORT-BOWEL SYNDROME
     Dosage: 1.80 MILLIGRAM, 1X/DAY:QD
     Route: 058
     Dates: start: 20190208
  2. ADVIL COLD AND SINUS PLUS [Concomitant]
     Active Substance: CHLORPHENIRAMINE MALEATE\IBUPROFEN\PSEUDOEPHEDRINE HYDROCHLORIDE
     Indication: NASOPHARYNGITIS
  3. TEDUGLUTIDE [Suspect]
     Active Substance: TEDUGLUTIDE
     Dosage: UNK
     Route: 065
     Dates: start: 20190215
  4. NORMAL SALINE [Concomitant]
     Active Substance: SODIUM CHLORIDE
     Indication: PRODUCT USED FOR UNKNOWN INDICATION
  5. SUBOXONE [Concomitant]
     Active Substance: BUPRENORPHINE HYDROCHLORIDE\NALOXONE HYDROCHLORIDE
     Indication: PRODUCT USED FOR UNKNOWN INDICATION
  6. TPN [Concomitant]
     Active Substance: AMINO ACIDS\DEXTROSE\ELECTROLYTES NOS\SOYBEAN OIL
     Indication: PRODUCT USED FOR UNKNOWN INDICATION
  7. RAMIPRIL. [Concomitant]
     Active Substance: RAMIPRIL
     Indication: RENAL DISORDER

REACTIONS (16)
  - Nasopharyngitis [Unknown]
  - Night sweats [Recovered/Resolved]
  - Abdominal distension [Recovered/Resolved]
  - Injection site inflammation [Recovered/Resolved]
  - Muscle spasms [Recovered/Resolved]
  - Dehydration [Unknown]
  - Injection site swelling [Not Recovered/Not Resolved]
  - Nocturia [Recovering/Resolving]
  - Blood creatinine increased [Unknown]
  - Abdominal pain [Recovered/Resolved]
  - Influenza like illness [Recovering/Resolving]
  - Abnormal faeces [Recovering/Resolving]
  - Injection site erythema [Recovered/Resolved]
  - Hyperkalaemia [Recovered/Resolved]
  - Musculoskeletal stiffness [Recovered/Resolved]
  - Diarrhoea [Recovering/Resolving]

NARRATIVE: CASE EVENT DATE: 20190218
